FAERS Safety Report 7893281-3 (Version None)
Quarter: 2011Q4

REPORT INFORMATION
  Report Type: 
  Country: None (occurrence: None)
  Receive Date: 20111104
  Receipt Date: 20111025
  Transmission Date: 20120403
  Serious: Yes (Other)
  Sender: FDA-Public Use
  Company Number: US-JNJFOC-20111011275

PATIENT
  Sex: Male
  Weight: 81.65 kg

DRUGS (1)
  1. REMICADE [Suspect]
     Indication: CROHN'S DISEASE
     Route: 042
     Dates: start: 20100301

REACTIONS (12)
  - ERYTHEMA [None]
  - NONSPECIFIC REACTION [None]
  - APHASIA [None]
  - INFUSION RELATED REACTION [None]
  - EAR DISORDER [None]
  - PARAESTHESIA [None]
  - DYSPNOEA [None]
  - VOMITING [None]
  - FEELING HOT [None]
  - PRESYNCOPE [None]
  - CHEST DISCOMFORT [None]
  - HYPERTENSION [None]
